APPROVED DRUG PRODUCT: METHYLPREDNISOLONE ACETATE
Active Ingredient: METHYLPREDNISOLONE ACETATE
Strength: 80MG/ML
Dosage Form/Route: INJECTABLE;INJECTION
Application: A040620 | Product #002
Applicant: TEVA PHARMACEUTICALS USA
Approved: Oct 27, 2006 | RLD: No | RS: No | Type: DISCN